FAERS Safety Report 5959458-9 (Version None)
Quarter: 2008Q4

REPORT INFORMATION
  Report Type: 
  Country: None (occurrence: None)
  Receive Date: 20081117
  Receipt Date: 20081106
  Transmission Date: 20090506
  Serious: Yes (Other)
  Sender: FDA-Public Use
  Company Number: 2008SP022839

PATIENT
  Age: 47 Year
  Sex: Male

DRUGS (7)
  1. RIBAVIRIN [Suspect]
     Indication: HEPATITIS C
     Dosage: 200 MG; BID
     Dates: start: 20040301, end: 20040801
  2. PEGASYS [Suspect]
     Indication: HEPATITIS C
     Dosage: 180 MCG;QW
     Dates: start: 20040301, end: 20040801
  3. STAVUDINE [Concomitant]
  4. LAMIVUDINE [Concomitant]
  5. INDINIVIR SULFATE [Concomitant]
  6. LAMIVUDINE AND ZIDOVUDINE [Concomitant]
  7. NEVIRAPINE [Concomitant]

REACTIONS (1)
  - ORAL LICHEN PLANUS [None]
